FAERS Safety Report 5343438-0 (Version None)
Quarter: 2007Q2

REPORT INFORMATION
  Report Type: 
  Country: None (occurrence: None)
  Receive Date: 20070531
  Receipt Date: 20070521
  Transmission Date: 20071010
  Serious: Yes (Death)
  Sender: FDA-Public Use
  Company Number: 07H-020-0312633-00

PATIENT
  Sex: Male

DRUGS (2)
  1. PRECEDEX [Suspect]
     Indication: ANAESTHESIA
  2. PROPOFOL [Concomitant]

REACTIONS (2)
  - AIRWAY COMPLICATION OF ANAESTHESIA [None]
  - RESPIRATORY ARREST [None]
